FAERS Safety Report 8125701-3 (Version None)
Quarter: 2012Q1

REPORT INFORMATION
  Report Type: 
  Country: None (occurrence: None)
  Receive Date: 20120206
  Receipt Date: 20120123
  Transmission Date: 20120608
  Serious: Yes (Hospitalization)
  Sender: FDA-Public Use
  Company Number: 7108694

PATIENT
  Age: 66 Year
  Sex: Female

DRUGS (14)
  1. REBIF [Suspect]
     Indication: RELAPSING-REMITTING MULTIPLE SCLEROSIS
     Dosage: 9.4286 MCG (22 MCG, 3 IN 1 WK), 18.8571 MCG (44 MCG, 3 IN 1 WK) SUBCUTANEOUS
     Route: 058
     Dates: start: 19970101
  2. REBIF [Suspect]
     Indication: RELAPSING-REMITTING MULTIPLE SCLEROSIS
     Dosage: 9.4286 MCG (22 MCG, 3 IN 1 WK), 18.8571 MCG (44 MCG, 3 IN 1 WK) SUBCUTANEOUS
     Route: 058
     Dates: end: 20120119
  3. MICROPIRIN (ACETYLSALICYLIC ACID) [Concomitant]
  4. LEVOTHYROXINE SODIUM [Suspect]
     Indication: HYPOTHYROIDISM
     Dosage: (1 IN 1 D) ORAL
     Route: 048
     Dates: end: 20111101
  5. OXYGEN (OXYGEN) [Concomitant]
  6. LIPITOR [Concomitant]
  7. FUSID (FUROSEMIDE) [Concomitant]
  8. CARDILOC (BISOPROLOL FUMARATE) [Concomitant]
  9. TRACLEER [Concomitant]
  10. VENTAVIS [Concomitant]
  11. AEROVENT (IPRATROPIUM BROMIDE) [Concomitant]
  12. REMODULIN [Concomitant]
  13. LEVOTHYROXINE SODIUM [Suspect]
     Dosage: ORAL
     Route: 048
     Dates: start: 20111101
  14. PLAVIX [Concomitant]

REACTIONS (6)
  - PULMONARY HYPERTENSION [None]
  - HYPOTHYROIDISM [None]
  - DYSPNOEA [None]
  - ASTHENIA [None]
  - PULMONARY OEDEMA [None]
  - PULMONARY ARTERY STENOSIS [None]
